FAERS Safety Report 6831153-3 (Version None)
Quarter: 2010Q3

REPORT INFORMATION
  Report Type: 
  Country: None (occurrence: None)
  Receive Date: 20100709
  Receipt Date: 20100709
  Transmission Date: 20110219
  Serious: Yes (Hospitalization)
  Sender: FDA-Public Use
  Company Number: None

PATIENT
  Age: 37 Year
  Sex: Female
  Weight: 69 kg

DRUGS (2)
  1. DOCETAXEL [Suspect]
     Indication: BREAST CANCER
     Dosage: IV DRIP
     Route: 041
  2. TRASTUZUMAB [Suspect]
     Indication: BREAST CANCER
     Dosage: IV DRIP
     Route: 041

REACTIONS (7)
  - MALAISE [None]
  - MYALGIA [None]
  - NEUTROPENIA [None]
  - OEDEMA PERIPHERAL [None]
  - PAIN IN EXTREMITY [None]
  - PHARYNGEAL DISORDER [None]
  - PYREXIA [None]
